FAERS Safety Report 8068340-5 (Version None)
Quarter: 2012Q1

REPORT INFORMATION
  Report Type: 
  Country: None (occurrence: None)
  Receive Date: 20120124
  Receipt Date: 20111013
  Transmission Date: 20120608
  Serious: No
  Sender: FDA-Public Use
  Company Number: US-AMGEN-USASP2011053217

PATIENT
  Age: 76 Year

DRUGS (6)
  1. LYRICA [Concomitant]
  2. ANTACID                            /00018101/ [Concomitant]
  3. POTASSIUM                          /00031402/ [Concomitant]
  4. PROLIA [Suspect]
     Indication: PRODUCT USED FOR UNKNOWN INDICATION
     Dates: start: 20110101, end: 20110101
  5. DIURETIC                           /00022001/ [Concomitant]
  6. ANTIHYPERTENSIVES [Suspect]

REACTIONS (1)
  - MUSCULAR WEAKNESS [None]
